FAERS Safety Report 24211534 (Version 1)
Quarter: 2024Q3

REPORT INFORMATION
  Report Type: Report from Study
  Country: MA (occurrence: MA)
  Receive Date: 20240814
  Receipt Date: 20240814
  Transmission Date: 20241016
  Serious: Yes (Other)
  Sender: JOHNSON AND JOHNSON
  Company Number: MA-JNJFOC-20240830144

PATIENT

DRUGS (6)
  1. REMICADE [Suspect]
     Active Substance: INFLIXIMAB
     Indication: Rheumatoid arthritis
     Route: 041
  2. REMICADE [Suspect]
     Active Substance: INFLIXIMAB
     Indication: Spondylitis
  3. REMICADE [Suspect]
     Active Substance: INFLIXIMAB
     Indication: Rheumatic disorder
  4. ADALIMUMAB [Suspect]
     Active Substance: ADALIMUMAB
     Indication: Rheumatoid arthritis
     Route: 065
  5. ADALIMUMAB [Suspect]
     Active Substance: ADALIMUMAB
     Indication: Spondylitis
  6. ADALIMUMAB [Suspect]
     Active Substance: ADALIMUMAB
     Indication: Rheumatic disorder

REACTIONS (4)
  - Disseminated tuberculosis [Unknown]
  - Tuberculosis gastrointestinal [Unknown]
  - Meningitis tuberculous [Unknown]
  - Lymph node tuberculosis [Unknown]
